FAERS Safety Report 17129534 (Version 1)
Quarter: 2019Q4

REPORT INFORMATION
  Report Type: Spontaneous
  Country: US (occurrence: US)
  Receive Date: 20191209
  Receipt Date: 20191209
  Transmission Date: 20200122
  Serious: No
  Sender: FDA-Public Use
  Company Number: US-PFIZER INC-2019527544

PATIENT
  Age: 56 Year
  Sex: Male
  Weight: 88.45 kg

DRUGS (2)
  1. RAPAMUNE [Suspect]
     Active Substance: SIROLIMUS
     Indication: PROPHYLAXIS AGAINST TRANSPLANT REJECTION
     Dosage: 1 MG, DAILY (0.5 MG, 2 TABLETS EVERY MORNING)
     Route: 048
     Dates: start: 201909, end: 20191101
  2. RAPAMUNE [Suspect]
     Active Substance: SIROLIMUS
     Indication: RENAL TRANSPLANT

REACTIONS (4)
  - Gait disturbance [Recovering/Resolving]
  - Bone pain [Recovering/Resolving]
  - Drug ineffective [Unknown]
  - Pain in extremity [Recovering/Resolving]
